FAERS Safety Report 8422336-X (Version None)
Quarter: 2012Q2

REPORT INFORMATION
  Report Type: 
  Country: None (occurrence: None)
  Receive Date: 20120608
  Receipt Date: 20120525
  Transmission Date: 20120825
  Serious: Yes (Hospitalization)
  Sender: FDA-Public Use
  Company Number: DE-TEVA-341507GER

PATIENT
  Sex: Female

DRUGS (7)
  1. METHOTREXATE [Suspect]
     Indication: RHEUMATOID ARTHRITIS
     Dates: start: 19890101
  2. ABATACEPT [Suspect]
     Indication: RHEUMATOID ARTHRITIS
     Dates: start: 20090201, end: 20110118
  3. METHOTREXATE [Suspect]
     Dates: start: 20070604, end: 20091124
  4. ABATACEPT [Suspect]
     Dates: start: 20110629, end: 20111001
  5. METHOTREXATE [Suspect]
     Dates: start: 20091125
  6. ABATACEPT [Suspect]
     Dates: start: 20110119, end: 20110504
  7. ABATACEPT [Suspect]
     Dates: start: 20120101

REACTIONS (1)
  - CELLULITIS [None]
